FAERS Safety Report 14666444 (Version 1)
Quarter: 2018Q1

REPORT INFORMATION
  Report Type: Spontaneous
  Country: US (occurrence: US)
  Receive Date: 20180320
  Receipt Date: 20180320
  Transmission Date: 20180509
  Serious: Yes (Other)
  Sender: FDA-Public Use
  Company Number: None

PATIENT
  Age: 67 Year
  Sex: Male

DRUGS (2)
  1. CEFTRIAXONE 2 GRAM APOTEX CORP [Suspect]
     Active Substance: CEFTRIAXONE
     Indication: ILL-DEFINED DISORDER
     Route: 042
     Dates: start: 20180209
  2. VANCOMYCIN [Suspect]
     Active Substance: VANCOMYCIN
     Indication: ILL-DEFINED DISORDER
     Route: 042
     Dates: start: 20180221

REACTIONS (2)
  - Pyrexia [None]
  - Rash [None]

NARRATIVE: CASE EVENT DATE: 20180304
